FAERS Safety Report 7907724-X (Version None)
Quarter: 2011Q4

REPORT INFORMATION
  Report Type: 
  Country: None (occurrence: None)
  Receive Date: 20111110
  Receipt Date: 20111027
  Transmission Date: 20120403
  Serious: No
  Sender: FDA-Public Use
  Company Number: US-ELI_LILLY_AND_COMPANY-US201110007964

PATIENT
  Age: 38 Year
  Sex: Female

DRUGS (11)
  1. OXYCODONE HCL [Concomitant]
     Dosage: 20 MG, PRN
  2. NOVOLOG [Concomitant]
     Dosage: 18 U, QD
  3. LANTUS [Concomitant]
     Dosage: 25 U, QD
  4. CYMBALTA [Suspect]
     Dosage: 30 MG, QD
  5. CYMBALTA [Suspect]
     Indication: DIABETIC NEUROPATHY
     Dosage: 60 MG, QD
     Dates: start: 20110701
  6. OMEPRAZOLE [Concomitant]
     Dosage: 40 MG, QD
  7. METFORMIN HCL [Concomitant]
     Dosage: 2500 MG, QD
  8. GABAPENTIN [Concomitant]
     Dosage: 3600 MG, QD
  9. LORAZEPAM [Concomitant]
     Dosage: 3 MG, PRN
  10. MULTI-VITAMIN [Concomitant]
  11. CYCLOBENZAPRINE [Concomitant]
     Dosage: 30 MG, QD

REACTIONS (3)
  - HEPATIC STEATOSIS [None]
  - MALAISE [None]
  - SENSATION OF PRESSURE [None]
